FAERS Safety Report 13429406 (Version 3)
Quarter: 2017Q2

REPORT INFORMATION
  Report Type: Report from Study
  Country: None (occurrence: US)
  Receive Date: 20170411
  Receipt Date: 20170626
  Transmission Date: 20170830
  Serious: Yes (Other)
  Sender: FDA-Public Use
  Company Number: US-ABBVIE-16K-163-1772506-00

PATIENT
  Sex: Female

DRUGS (2)
  1. HUMIRA [Suspect]
     Active Substance: ADALIMUMAB
     Indication: PSORIATIC ARTHROPATHY
     Route: 058
     Dates: start: 201609, end: 201610
  2. HUMIRA [Suspect]
     Active Substance: ADALIMUMAB
     Indication: PSORIASIS
     Route: 058
     Dates: start: 2016

REACTIONS (10)
  - Pain [Unknown]
  - Pain in extremity [Unknown]
  - Nerve compression [Recovering/Resolving]
  - Musculoskeletal stiffness [Unknown]
  - Peripheral swelling [Unknown]
  - Gait disturbance [Unknown]
  - Psoriasis [Unknown]
  - Joint swelling [Unknown]
  - Arthralgia [Unknown]
  - Psoriasis [Not Recovered/Not Resolved]

NARRATIVE: CASE EVENT DATE: 2016
